FAERS Safety Report 6760896-5 (Version None)
Quarter: 2010Q2

REPORT INFORMATION
  Report Type: 
  Country: None (occurrence: None)
  Receive Date: 20100604
  Receipt Date: 20100522
  Transmission Date: 20101027
  Serious: Yes (Other)
  Sender: FDA-Public Use
  Company Number: 230191J10USA

PATIENT
  Age: 53 Year
  Sex: Female
  Weight: 145 kg

DRUGS (9)
  1. REBIF [Suspect]
     Indication: MULTIPLE SCLEROSIS
     Dosage: 3 IN 1 WK SUBCUTANEOUS; 22 MCG, 3 IN 1 WK, SUBCUTANEOUS; 44 MCG, 3 IN 1 WK, SUBCUTANEOUS
     Route: 058
     Dates: start: 20100106, end: 20100101
  2. REBIF [Suspect]
     Indication: MULTIPLE SCLEROSIS
     Dosage: 3 IN 1 WK SUBCUTANEOUS; 22 MCG, 3 IN 1 WK, SUBCUTANEOUS; 44 MCG, 3 IN 1 WK, SUBCUTANEOUS
     Route: 058
     Dates: start: 20091216, end: 20100106
  3. REBIF [Suspect]
     Indication: MULTIPLE SCLEROSIS
     Dosage: 3 IN 1 WK SUBCUTANEOUS; 22 MCG, 3 IN 1 WK, SUBCUTANEOUS; 44 MCG, 3 IN 1 WK, SUBCUTANEOUS
     Route: 058
     Dates: start: 20100101, end: 20100301
  4. UNSPECIFIED INHALER (ANTI-ASTHMATICS) [Concomitant]
  5. METOPROLOL SUCCINATE [Concomitant]
  6. CLONIDINE [Concomitant]
  7. INSULIN (INSULIN) [Concomitant]
  8. SYNTHROID [Concomitant]
  9. ASPIRIN [Concomitant]

REACTIONS (9)
  - ANAPHYLACTIC REACTION [None]
  - BACK PAIN [None]
  - CHILLS [None]
  - COUGH [None]
  - DIZZINESS [None]
  - FIBRIN D DIMER INCREASED [None]
  - LUNG DISORDER [None]
  - PAIN [None]
  - TREMOR [None]
